FAERS Safety Report 10247239 (Version 1)
Quarter: 2014Q2

REPORT INFORMATION
  Report Type: Spontaneous
  Country: GB (occurrence: None)
  Receive Date: 20140617
  Receipt Date: 20140617
  Transmission Date: 20141212
  Serious: Yes (Hospitalization)
  Sender: FDA-Public Use
  Company Number: IPC201406-000301

PATIENT
  Age: 18 Year
  Sex: Male

DRUGS (4)
  1. TRAMADOL (TRAMADOL) (TRAMADOL) [Suspect]
  2. CODEINE (CODEINE)(CODEINE) [Suspect]
  3. MORPHINE (MORPHINE) (MORPHINE) [Suspect]
     Route: 048
  4. PARACETAMOL (PARACETAMOL) (PARACETAMOL) [Suspect]

REACTIONS (2)
  - Hypopituitarism [None]
  - Adrenal insufficiency [None]
